FAERS Safety Report 4961009-2 (Version None)
Quarter: 2006Q2

REPORT INFORMATION
  Report Type: 
  Country: None (occurrence: None)
  Receive Date: 20060403
  Receipt Date: 20060307
  Transmission Date: 20061013
  Serious: No
  Sender: FDA-Public Use
  Company Number: JP-AVENTIS-200610745JP

PATIENT
  Age: 52 Year
  Sex: Female

DRUGS (2)
  1. ALLEGRA [Suspect]
     Indication: RHINITIS ALLERGIC
     Route: 048
     Dates: start: 20060306, end: 20060306
  2. BAYNAS [Suspect]
     Indication: RHINITIS ALLERGIC
     Route: 048
     Dates: start: 20060306, end: 20060306

REACTIONS (8)
  - DIARRHOEA [None]
  - HYPERSENSITIVITY [None]
  - NAUSEA [None]
  - OEDEMA PERIPHERAL [None]
  - PRURITUS [None]
  - RASH [None]
  - SHOCK [None]
  - VOMITING [None]
